FAERS Safety Report 8074709-5 (Version None)
Quarter: 2012Q1

REPORT INFORMATION
  Report Type: 
  Country: None (occurrence: None)
  Receive Date: 20120126
  Receipt Date: 20120118
  Transmission Date: 20120608
  Serious: Yes (Death, Hospitalization)
  Sender: FDA-Public Use
  Company Number: JP-ROCHE-702722

PATIENT
  Sex: Female
  Weight: 47 kg

DRUGS (24)
  1. ACTEMRA [Suspect]
     Route: 041
     Dates: start: 20090416, end: 20090416
  2. PREDNISOLONE [Suspect]
     Route: 048
     Dates: start: 20090224, end: 20090318
  3. ACTEMRA [Suspect]
     Route: 041
     Dates: start: 20090319, end: 20090319
  4. ACTEMRA [Suspect]
     Route: 041
     Dates: start: 20091104, end: 20091104
  5. PREDNISOLONE [Suspect]
     Route: 048
     Dates: start: 20081017, end: 20081030
  6. PREDNISOLONE [Suspect]
     Route: 048
     Dates: start: 20081212, end: 20081218
  7. PREDNISOLONE [Suspect]
     Route: 048
     Dates: start: 20090319, end: 20090415
  8. ACTEMRA [Suspect]
     Indication: RHEUMATOID ARTHRITIS
     Route: 041
     Dates: start: 20081225, end: 20081225
  9. ACTEMRA [Suspect]
     Route: 041
     Dates: start: 20090223, end: 20090223
  10. ACTEMRA [Suspect]
     Route: 041
     Dates: start: 20090811, end: 20090811
  11. PREDNISOLONE [Suspect]
     Indication: RHEUMATOID ARTHRITIS
     Dosage: FORM: PERORAL AGENT
     Route: 048
     Dates: start: 20080926, end: 20081016
  12. PREDNISOLONE [Suspect]
     Route: 048
     Dates: start: 20090127, end: 20090223
  13. PREDNISOLONE [Suspect]
     Route: 048
  14. ACTEMRA [Suspect]
     Route: 041
     Dates: start: 20090714, end: 20090714
  15. ACTEMRA [Suspect]
     Route: 041
     Dates: start: 20091006, end: 20091006
  16. PREDNISOLONE [Suspect]
     Route: 048
     Dates: start: 20081114, end: 20081204
  17. PREDNISOLONE [Suspect]
     Route: 048
     Dates: start: 20081205, end: 20081211
  18. ACTEMRA [Suspect]
     Route: 041
     Dates: start: 20090126, end: 20090126
  19. ACTEMRA [Suspect]
     Route: 041
     Dates: start: 20090514, end: 20090514
  20. ACTEMRA [Suspect]
     Route: 041
     Dates: start: 20090611, end: 20090611
  21. ACTEMRA [Suspect]
     Route: 041
     Dates: start: 20091202, end: 20100420
  22. PREDNISOLONE [Suspect]
     Route: 048
     Dates: start: 20081219, end: 20090126
  23. ACTEMRA [Suspect]
     Route: 041
     Dates: start: 20090908, end: 20090908
  24. PREDNISOLONE [Suspect]
     Route: 048
     Dates: start: 20081031, end: 20081113

REACTIONS (9)
  - PERICARDIAL EFFUSION [None]
  - PNEUMONIA ASPIRATION [None]
  - PULMONARY OEDEMA [None]
  - RENAL FAILURE CHRONIC [None]
  - AZOTAEMIA [None]
  - SEPSIS [None]
  - ACUTE RESPIRATORY DISTRESS SYNDROME [None]
  - CARDIAC FAILURE [None]
  - CHEST X-RAY ABNORMAL [None]
